FAERS Safety Report 5723613-3 (Version None)
Quarter: 2008Q2

REPORT INFORMATION
  Report Type: 
  Country: None (occurrence: None)
  Receive Date: 20080430
  Receipt Date: 20080428
  Transmission Date: 20081010
  Serious: Yes (Other)
  Sender: FDA-Public Use
  Company Number: FR-BRISTOL-MYERS SQUIBB COMPANY-14169502

PATIENT
  Age: 46 Year
  Sex: Female

DRUGS (6)
  1. TAXOL [Suspect]
     Indication: BREAST CANCER
     Dosage: 375 TWO COURSES ON 20-JUN-2007.
     Dates: start: 20070313, end: 20070403
  2. CYCLOPHOSPHAMIDE [Suspect]
     Indication: BREAST CANCER
     Dates: start: 20061219, end: 20070130
  3. FLUOROURACIL [Suspect]
     Indication: BREAST CANCER
     Dates: start: 20061219, end: 20070130
  4. EPIRUBICIN [Suspect]
     Indication: BREAST CANCER
     Dates: start: 20061219, end: 20070130
  5. TAXOTERE [Suspect]
     Indication: BREAST CANCER
     Dosage: 100 ONE COURSE; 5 COURSES AT 6 MG/KG ON 20-JUN-2007
     Dates: start: 20070220
  6. HERCEPTIN [Suspect]
     Indication: BREAST CANCER
     Dates: start: 20070220, end: 20070919

REACTIONS (1)
  - EJECTION FRACTION DECREASED [None]
